FAERS Safety Report 10073773 (Version 2)
Quarter: 2014Q2

REPORT INFORMATION
  Report Type: Spontaneous
  Country: US (occurrence: US)
  Receive Date: 20140411
  Receipt Date: 20140613
  Transmission Date: 20141212
  Serious: Yes (Death)
  Sender: FDA-Public Use
  Company Number: US-FRI-1000066357

PATIENT
  Age: 82 Year
  Sex: Male
  Weight: 72.5 kg

DRUGS (1)
  1. NAMENDA [Suspect]
     Dates: start: 20110728, end: 20131203

REACTIONS (1)
  - Death [Fatal]
